FAERS Safety Report 10906074 (Version 1)
Quarter: 2015Q1

REPORT INFORMATION
  Report Type: Spontaneous
  Country: US (occurrence: US)
  Receive Date: 20150311
  Receipt Date: 20150311
  Transmission Date: 20150721
  Serious: No
  Sender: FDA-Public Use
  Company Number: US-GLAXOSMITHKLINE-US2015GSK027980

PATIENT
  Age: 65 Year
  Sex: Female

DRUGS (7)
  1. ANORO ELLIPTA [Suspect]
     Active Substance: UMECLIDINIUM BROMIDE\VILANTEROL TRIFENATATE
     Indication: ASTHMA
     Dosage: 1 PUFF(S), QD
     Route: 055
     Dates: start: 201501
  2. FOSAMAX [Concomitant]
     Active Substance: ALENDRONATE SODIUM
  3. ROBAXIN [Concomitant]
     Active Substance: METHOCARBAMOL
  4. ALBUTEROL NEBULISER SOLUTION [Concomitant]
     Active Substance: ALBUTEROL SULFATE
  5. KLONOPIN [Concomitant]
     Active Substance: CLONAZEPAM
  6. ALBUTEROL INHALATIONAL POWDER [Suspect]
     Active Substance: ALBUTEROL
     Indication: PRODUCT USED FOR UNKNOWN INDICATION
     Dosage: UNK, U
     Route: 065
  7. PRIMIDONE. [Concomitant]
     Active Substance: PRIMIDONE

REACTIONS (9)
  - Dyspnoea [Unknown]
  - Bronchospasm [Unknown]
  - Drug hypersensitivity [Unknown]
  - Choking sensation [Not Recovered/Not Resolved]
  - Product quality issue [Unknown]
  - Productive cough [Not Recovered/Not Resolved]
  - Underdose [Unknown]
  - Cough [Not Recovered/Not Resolved]
  - Drug ineffective [Not Recovered/Not Resolved]

NARRATIVE: CASE EVENT DATE: 201501
